FAERS Safety Report 5059528-6 (Version None)
Quarter: 2006Q3

REPORT INFORMATION
  Report Type: 
  Country: None (occurrence: None)
  Receive Date: 20060724
  Receipt Date: 20060714
  Transmission Date: 20061208
  Serious: Yes (Hospitalization)
  Sender: FDA-Public Use
  Company Number: PHBS2006CH10457

PATIENT
  Age: 64 Year
  Sex: Female

DRUGS (4)
  1. LEPONEX [Suspect]
     Indication: ACCIDENTAL EXPOSURE
     Dosage: 150 MG, ONCE/SINGLE
     Route: 030
     Dates: start: 20060523, end: 20060523
  2. LEXOTANIL [Suspect]
     Dosage: 1.5 MG/D
     Route: 048
  3. STILNOX [Concomitant]
     Dosage: 1.5 MG, AS NECESSARY
     Route: 048
  4. CALCIMAGON-D3 [Concomitant]
     Route: 065

REACTIONS (7)
  - ACCIDENTAL EXPOSURE [None]
  - ACCIDENTAL OVERDOSE [None]
  - BLOOD PRESSURE DECREASED [None]
  - COMA [None]
  - ELECTROCARDIOGRAM QT PROLONGED [None]
  - HYPERGLYCAEMIA [None]
  - HYPOTENSION [None]
